FAERS Safety Report 19581923 (Version 2)
Quarter: 2021Q4

REPORT INFORMATION
  Report Type: Report from Study
  Country: None (occurrence: US)
  Receive Date: 20210719
  Receipt Date: 20211014
  Transmission Date: 20220303
  Serious: Yes (Death, Hospitalization, Other)
  Sender: FDA-Public Use
  Company Number: US-ABBVIE-21P-163-3885811-00

PATIENT
  Age: 76 Year
  Sex: Male
  Weight: 113.4 kg

DRUGS (11)
  1. IBRUTINIB [Suspect]
     Active Substance: IBRUTINIB
     Indication: Chronic lymphocytic leukaemia
     Route: 048
     Dates: start: 20201207, end: 20210516
  2. VENETOCLAX [Suspect]
     Active Substance: VENETOCLAX
     Indication: Chronic lymphocytic leukaemia
     Dosage: DAYS 1-7 CYCLE 3
     Route: 048
  3. VENETOCLAX [Suspect]
     Active Substance: VENETOCLAX
     Dosage: DAYS 8-14 CYCLE 3
     Route: 048
  4. VENETOCLAX [Suspect]
     Active Substance: VENETOCLAX
     Dosage: DAYS 22-28, CYCLE 3
     Route: 048
  5. VENETOCLAX [Suspect]
     Active Substance: VENETOCLAX
     Dosage: DAYS 1-28, CYCLE 4-14
     Route: 048
  6. VENETOCLAX [Suspect]
     Active Substance: VENETOCLAX
     Dosage: DAYS 15-21, CYCLE 3
     Route: 048
     Dates: end: 20210325
  7. OBINUTUZUMAB [Concomitant]
     Active Substance: OBINUTUZUMAB
     Indication: Chronic lymphocytic leukaemia
     Dosage: ON C1D1
     Route: 042
     Dates: start: 20201207, end: 20201207
  8. OBINUTUZUMAB [Concomitant]
     Active Substance: OBINUTUZUMAB
     Dosage: ON C1D2
     Route: 048
     Dates: start: 20201208, end: 20201208
  9. OBINUTUZUMAB [Concomitant]
     Active Substance: OBINUTUZUMAB
     Dosage: ON C1D8 + C1D15, C2-6D1?DOSE PRIOR TO AE: 21 MAR 2021
     Route: 048
     Dates: start: 202012
  10. COVID-19 VACCINE [Concomitant]
     Indication: Product used for unknown indication
     Dates: start: 20210208, end: 20210208
  11. COVID-19 VACCINE [Concomitant]
     Dates: start: 20210308, end: 20210308

REACTIONS (10)
  - Death [Fatal]
  - Asthenia [Recovered/Resolved]
  - Pneumonia [Recovered/Resolved with Sequelae]
  - Dehydration [Recovered/Resolved]
  - Pyrexia [Recovered/Resolved]
  - Hypoxia [Recovered/Resolved]
  - Hypertension [Recovered/Resolved with Sequelae]
  - Respiratory failure [Not Recovered/Not Resolved]
  - COVID-19 [Not Recovered/Not Resolved]
  - Hypoxia [Not Recovered/Not Resolved]

NARRATIVE: CASE EVENT DATE: 20210301
